FAERS Safety Report 15641290 (Version 1)
Quarter: 2018Q4

REPORT INFORMATION
  Report Type: Spontaneous
  Country: DE (occurrence: DE)
  Receive Date: 20181120
  Receipt Date: 20181120
  Transmission Date: 20190205
  Serious: Yes (Other)
  Sender: FDA-Public Use
  Company Number: PHHY2018DE158920

PATIENT
  Age: 15 Year
  Sex: Male
  Weight: 84 kg

DRUGS (4)
  1. FOLIC ACID. [Concomitant]
     Active Substance: FOLIC ACID
     Indication: PRODUCT USED FOR UNKNOWN INDICATION
     Dosage: 5 MG, QW, DOSAGE FORM: UNSPECIFIED
     Route: 065
  2. SIMPONI [Suspect]
     Active Substance: GOLIMUMAB
     Indication: JUVENILE IDIOPATHIC ARTHRITIS
     Dosage: 100 MG, Q4W
     Route: 058
     Dates: end: 20180101
  3. METHOTREXATE. [Suspect]
     Active Substance: METHOTREXATE
     Indication: JUVENILE IDIOPATHIC ARTHRITIS
     Dosage: 15 MG, QW, DOSAGE FORM: UNSPECIFIED
     Route: 065
     Dates: start: 20161109
  4. SIMPONI [Suspect]
     Active Substance: GOLIMUMAB
     Dosage: 50 MG, Q4W
     Route: 058
     Dates: start: 20170329

REACTIONS (4)
  - Juvenile idiopathic arthritis [Unknown]
  - Incorrect dose administered [Unknown]
  - Off label use [Unknown]
  - Drug ineffective [Unknown]

NARRATIVE: CASE EVENT DATE: 20171220
